FAERS Safety Report 4783506-5 (Version None)
Quarter: 2005Q3

REPORT INFORMATION
  Report Type: 
  Country: None (occurrence: None)
  Receive Date: 20050914
  Receipt Date: 20050706
  Transmission Date: 20060218
  Serious: Yes (Other)
  Sender: FDA-Public Use
  Company Number: 163-20785-05070060

PATIENT
  Sex: Male

DRUGS (10)
  1. THALIDOMIDE OR PLACEBO (THALIDOMIDE) [Suspect]
     Indication: PROSTATIC INTRAEPITHELIAL NEOPLASIA
     Dosage: SEE IMAGE
     Route: 048
     Dates: start: 20021209
  2. THALIDOMIDE OR PLACEBO (THALIDOMIDE) [Suspect]
     Indication: PROSTATIC INTRAEPITHELIAL NEOPLASIA
     Dosage: SEE IMAGE
     Route: 048
     Dates: start: 20040524
  3. THALIDOMIDE OR PLACEBO (THALIDOMIDE) [Suspect]
     Indication: PROSTATIC INTRAEPITHELIAL NEOPLASIA
     Dosage: SEE IMAGE
     Route: 048
     Dates: start: 20050321
  4. (L) LEUPROLIDE [Suspect]
     Indication: PROSTATIC INTRAEPITHELIAL NEOPLASIA
     Dosage: LEUPROLIDE 7.5MG IM
     Route: 048
     Dates: start: 20021209
  5. (L) LEUPROLIDE [Suspect]
     Indication: PROSTATIC INTRAEPITHELIAL NEOPLASIA
     Dosage: LEUPROLIDE 7.5MG IM
     Route: 048
     Dates: start: 20040524
  6. (G) GOSERELIN [Suspect]
     Indication: PROSTATIC INTRAEPITHELIAL NEOPLASIA
     Route: 030
     Dates: start: 20021209
  7. (G) GOSERELIN [Suspect]
     Indication: PROSTATIC INTRAEPITHELIAL NEOPLASIA
     Route: 030
     Dates: start: 20050321
  8. (G) GOSERELIN [Suspect]
     Indication: PROSTATIC INTRAEPITHELIAL NEOPLASIA
     Dosage: SEE IMAGE
     Route: 058
     Dates: start: 20021209
  9. (G) GOSERELIN [Suspect]
     Indication: PROSTATIC INTRAEPITHELIAL NEOPLASIA
     Dosage: SEE IMAGE
     Route: 058
     Dates: start: 20040524
  10. (G) GOSERELIN [Suspect]
     Indication: PROSTATIC INTRAEPITHELIAL NEOPLASIA
     Dosage: SEE IMAGE
     Route: 058
     Dates: start: 20050321

REACTIONS (1)
  - DYSPEPSIA [None]
